FAERS Safety Report 8442863-9 (Version None)
Quarter: 2012Q2

REPORT INFORMATION
  Report Type: 
  Country: None (occurrence: None)
  Receive Date: 20120615
  Receipt Date: 20120606
  Transmission Date: 20120825
  Serious: Yes (Other)
  Sender: FDA-Public Use
  Company Number: US-ASTRAZENECA-2011SE24060

PATIENT
  Age: 56 Year
  Sex: Female

DRUGS (3)
  1. VIMOVO [Suspect]
     Route: 048
  2. NEXIUM [Suspect]
     Route: 048
  3. CELEBREX [Concomitant]

REACTIONS (11)
  - SKIN CANCER [None]
  - THERAPEUTIC RESPONSE UNEXPECTED [None]
  - DRUG INTOLERANCE [None]
  - RHEUMATOID ARTHRITIS [None]
  - INTENTIONAL DRUG MISUSE [None]
  - CHONDROPATHY [None]
  - GASTROOESOPHAGEAL REFLUX DISEASE [None]
  - OSTEOARTHRITIS [None]
  - ROAD TRAFFIC ACCIDENT [None]
  - GAIT DISTURBANCE [None]
  - HIATUS HERNIA [None]
